FAERS Safety Report 7734856 (Version 3)
Quarter: 2012Q4

REPORT INFORMATION
  Report Type: Report from Study
  Country: KR (occurrence: KR)
  Receive Date: 20101223
  Receipt Date: 20121030
  Transmission Date: 20130627
  Serious: Yes (Death, Hospitalization)
  Sender: FDA-Public Use
  Company Number: PHHO2010KR19292

PATIENT
  Age: 72 Year
  Sex: Female
  Weight: 56 kg

DRUGS (1)
  1. EVEROLIMUS [Suspect]
     Indication: THYROID CANCER
     Dosage: 10 mg, QD
     Route: 048
     Dates: start: 20101130, end: 20101216

REACTIONS (16)
  - Septic shock [Fatal]
  - Blood pressure decreased [Fatal]
  - Pyelonephritis acute [Fatal]
  - Abdominal pain [Fatal]
  - Leukocytosis [Fatal]
  - C-reactive protein increased [Fatal]
  - Pulmonary oedema [Fatal]
  - Cardiac arrest [Fatal]
  - Pulse absent [Fatal]
  - Acute respiratory distress syndrome [Fatal]
  - Oxygen saturation decreased [Fatal]
  - Dyspnoea [Fatal]
  - Hypoxia [Fatal]
  - Renal failure acute [Fatal]
  - Hyperkalaemia [Fatal]
  - Metabolic acidosis [Fatal]
